FAERS Safety Report 23736808 (Version 1)
Quarter: 2024Q2

REPORT INFORMATION
  Report Type: Spontaneous
  Country: US (occurrence: US)
  Receive Date: 20240412
  Receipt Date: 20240412
  Transmission Date: 20240717
  Serious: Yes (Other)
  Sender: FDA-Public Use
  Company Number: US-SUN PHARMACEUTICAL INDUSTRIES LTD-2024R1-440634

PATIENT
  Age: 62 Year
  Sex: Female

DRUGS (5)
  1. ALENDRONATE [Suspect]
     Active Substance: ALENDRONATE SODIUM
     Indication: Osteoporosis
     Dosage: 70 MILLIGRAM, WEEKLY
     Route: 065
  2. CALCIUM [Concomitant]
     Active Substance: CALCIUM
     Indication: Osteoporosis
     Dosage: 1800 MILLIGRAM, DAILY
     Route: 065
  3. Glucocerebrosidase [Concomitant]
     Indication: Hormone replacement therapy
     Dosage: UNK
     Route: 065
  4. Glucocerebrosidase [Concomitant]
     Indication: Gaucher^s disease type I
  5. VITAMIN D [Concomitant]
     Active Substance: VITAMIN D NOS
     Indication: Osteoporosis
     Dosage: 4000 IU, DAILY
     Route: 065

REACTIONS (1)
  - Condition aggravated [Unknown]
